FAERS Safety Report 11441403 (Version 1)
Quarter: 2015Q3

REPORT INFORMATION
  Report Type: Spontaneous
  Country: US (occurrence: US)
  Receive Date: 20150821
  Receipt Date: 20150821
  Transmission Date: 20151125
  Serious: No
  Sender: FDA-Public Use
  Company Number: US-ELI_LILLY_AND_COMPANY-US200807003472

PATIENT
  Age: 38 Year
  Sex: Female

DRUGS (1)
  1. CYMBALTA [Suspect]
     Active Substance: DULOXETINE HYDROCHLORIDE
     Dosage: 30 MG, DAILY (1/D)
     Route: 048
     Dates: start: 2005

REACTIONS (5)
  - Tremor [Unknown]
  - Sensation of blood flow [Unknown]
  - Paraesthesia oral [Unknown]
  - Musculoskeletal stiffness [Unknown]
  - Vomiting [Unknown]

NARRATIVE: CASE EVENT DATE: 2005
